FAERS Safety Report 12879127 (Version 1)
Quarter: 2016Q4

REPORT INFORMATION
  Report Type: Report from Study
  Country: US (occurrence: US)
  Receive Date: 20161024
  Receipt Date: 20161024
  Transmission Date: 20170207
  Serious: No
  Sender: FDA-Public Use
  Company Number: US-AMGEN-USASL2016136790

PATIENT
  Age: 42 Year
  Sex: Female

DRUGS (5)
  1. VITAMIN C [Concomitant]
     Active Substance: ASCORBIC ACID
     Dosage: UNK
     Dates: start: 2016
  2. MAGNESIUM [Concomitant]
     Active Substance: MAGNESIUM
     Dosage: UNK
     Dates: start: 201609
  3. ENBREL [Suspect]
     Active Substance: ETANERCEPT
     Indication: RHEUMATOID ARTHRITIS
     Dosage: 50 MG, QWK
     Route: 065
     Dates: start: 200802
  4. METHIMAZOLE. [Concomitant]
     Active Substance: METHIMAZOLE
     Indication: THYROID DISORDER
     Dosage: UNK
     Dates: start: 2008
  5. VITAMIN D [Concomitant]
     Active Substance: CHOLECALCIFEROL
     Dosage: 50,000 UNITS ONCE A WEEK

REACTIONS (9)
  - Blood iron decreased [Unknown]
  - Anxiety [Unknown]
  - Emotional distress [Unknown]
  - Vitamin B complex deficiency [Unknown]
  - Paranasal sinus discomfort [Unknown]
  - Sleep disorder [Unknown]
  - Stress [Unknown]
  - Tinnitus [Unknown]
  - Alopecia [Unknown]

NARRATIVE: CASE EVENT DATE: 2016
